FAERS Safety Report 6146439-8 (Version None)
Quarter: 2009Q2

REPORT INFORMATION
  Report Type: 
  Country: None (occurrence: None)
  Receive Date: 20090407
  Receipt Date: 20090331
  Transmission Date: 20091009
  Serious: Yes (Congenital Anomaly)
  Sender: FDA-Public Use
  Company Number: A0682202A

PATIENT
  Sex: Female
  Weight: 3.5 kg

DRUGS (5)
  1. PAXIL [Suspect]
     Indication: BIPOLAR DISORDER
     Dosage: 40MG UNKNOWN
  2. PAROXETINE HCL [Suspect]
     Indication: DEPRESSION
     Dosage: 40MG UNKNOWN
  3. PROMETHAZINE [Concomitant]
     Dosage: 25MG AS REQUIRED
     Dates: start: 20051016
  4. VITAMIN TAB [Concomitant]
     Dates: start: 20050701
  5. ZOLOFT [Concomitant]
     Dosage: 50MG PER DAY
     Dates: start: 20060101

REACTIONS (7)
  - ATRIAL SEPTAL DEFECT [None]
  - CAESAREAN SECTION [None]
  - DRUG EXPOSURE DURING PREGNANCY [None]
  - HEART DISEASE CONGENITAL [None]
  - MATERNAL DRUGS AFFECTING FOETUS [None]
  - MULTIPLE CONGENITAL ABNORMALITIES [None]
  - VENTRICULAR SEPTAL DEFECT [None]
